FAERS Safety Report 13234109 (Version 8)
Quarter: 2017Q4

REPORT INFORMATION
  Report Type: Spontaneous
  Country: US (occurrence: US)
  Receive Date: 20170215
  Receipt Date: 20171115
  Transmission Date: 20180320
  Serious: Yes (Congenital Anomaly, Other)
  Sender: FDA-Public Use
  Company Number: PHEH2017US004662

PATIENT
  Sex: Female

DRUGS (2)
  1. ZOFRAN [Suspect]
     Active Substance: ONDANSETRON HYDROCHLORIDE
     Indication: FOETAL EXPOSURE DURING PREGNANCY
     Dosage: MOTHER^S DOSE: 04 MG, UNK
     Route: 064
  2. ZOFRAN ODT [Suspect]
     Active Substance: ONDANSETRON HYDROCHLORIDE
     Indication: FOETAL EXPOSURE DURING PREGNANCY
     Dosage: MOTHER^S DOSE: 1 DF, EVERY EIGHT HOURLY (Q8H)
     Route: 064

REACTIONS (16)
  - Foetal macrosomia [Unknown]
  - Viral upper respiratory tract infection [Unknown]
  - Foetal exposure during pregnancy [Unknown]
  - Jaundice neonatal [Unknown]
  - Acne infantile [Unknown]
  - Congenital hydronephrosis [Unknown]
  - Injury [Unknown]
  - Conjunctivitis [Unknown]
  - Congenital ureteric anomaly [Unknown]
  - Subcutaneous abscess [Unknown]
  - Cellulitis [Unknown]
  - Dermatitis diaper [Unknown]
  - Nasal congestion [Unknown]
  - Gastrooesophageal reflux disease [Unknown]
  - Congenital megaureter [Unknown]
  - Speech disorder [Unknown]
